FAERS Safety Report 24881417 (Version 1)
Quarter: 2025Q1

REPORT INFORMATION
  Report Type: Spontaneous
  Country: US (occurrence: US)
  Receive Date: 20250124
  Receipt Date: 20250124
  Transmission Date: 20250409
  Serious: No
  Sender: BRISTOL-MYERS SQUIBB COMPANY
  Company Number: US-BRISTOL-MYERS SQUIBB COMPANY-2025-011118

PATIENT
  Age: 27 Year
  Sex: Male

DRUGS (2)
  1. SOTYKTU [Suspect]
     Active Substance: DEUCRAVACITINIB
     Indication: Psoriasis
  2. SOTYKTU [Suspect]
     Active Substance: DEUCRAVACITINIB
     Indication: Hidradenitis

REACTIONS (2)
  - Product dose omission issue [Unknown]
  - Adverse event [Unknown]
